FAERS Safety Report 20946063 (Version 3)
Quarter: 2022Q4

REPORT INFORMATION
  Report Type: Report from Study
  Country: CA (occurrence: CA)
  Receive Date: 20220610
  Receipt Date: 20221003
  Transmission Date: 20230113
  Serious: Yes (Death, Other)
  Sender: FDA-Public Use
  Company Number: CA-OTSUKA-2022_031191

PATIENT
  Age: 80 Year
  Sex: Male

DRUGS (1)
  1. CEDAZURIDINE\DECITABINE [Suspect]
     Active Substance: CEDAZURIDINE\DECITABINE
     Indication: Myelodysplastic syndrome
     Dosage: UNK
     Route: 065
     Dates: start: 20220316

REACTIONS (3)
  - Death [Fatal]
  - Transfusion [Unknown]
  - Syncope [Unknown]

NARRATIVE: CASE EVENT DATE: 20220904
